FAERS Safety Report 7860783-5 (Version None)
Quarter: 2011Q4

REPORT INFORMATION
  Report Type: 
  Country: None (occurrence: None)
  Receive Date: 20111027
  Receipt Date: 20111024
  Transmission Date: 20120403
  Serious: Yes (Hospitalization)
  Sender: FDA-Public Use
  Company Number: US-SANOFI-AVENTIS-2011SA025034

PATIENT
  Age: 70 Year
  Sex: Male
  Weight: 88.91 kg

DRUGS (9)
  1. RANITIDINE [Concomitant]
  2. LISINOPRIL [Concomitant]
     Indication: BLOOD PRESSURE
  3. PLAVIX [Suspect]
     Indication: ANGIOGRAM
     Route: 048
     Dates: start: 20110121
  4. PLAVIX [Suspect]
     Route: 048
     Dates: start: 20110401, end: 20110401
  5. PLAVIX [Suspect]
     Indication: STENT PLACEMENT
     Route: 048
     Dates: start: 20110121
  6. ISOSORBIDE DINITRATE [Concomitant]
  7. SIMVASTATIN [Concomitant]
  8. PLAVIX [Suspect]
     Route: 048
     Dates: start: 20110401, end: 20110401
  9. AMLODIPINE [Concomitant]
     Indication: BLOOD PRESSURE

REACTIONS (5)
  - LABORATORY TEST ABNORMAL [None]
  - PRODUCT QUALITY ISSUE [None]
  - DRUG INEFFECTIVE [None]
  - OVERDOSE [None]
  - NON-CARDIAC CHEST PAIN [None]
